FAERS Safety Report 15814947 (Version 1)
Quarter: 2019Q1

REPORT INFORMATION
  Report Type: Spontaneous
  Country: FR (occurrence: FR)
  Receive Date: 20190111
  Receipt Date: 20190111
  Transmission Date: 20190417
  Serious: Yes (Hospitalization)
  Sender: FDA-Public Use
  Company Number: FR-ACCORD-101642

PATIENT
  Age: 37 Year
  Sex: Male
  Weight: 92 kg

DRUGS (5)
  1. DAFALGAN CODEINE [Suspect]
     Active Substance: ACETAMINOPHEN\CODEINE PHOSPHATE
     Indication: NEURALGIA
     Route: 048
  2. LAROXYL [Suspect]
     Active Substance: AMITRIPTYLINE HYDROCHLORIDE
     Indication: NEURALGIA
     Route: 048
  3. NOCTAMIDE [Concomitant]
     Active Substance: LORMETAZEPAM
     Indication: ANXIETY
     Dosage: NP
     Route: 048
  4. BUSPIRONE [Suspect]
     Active Substance: BUSPIRONE HYDROCHLORIDE
     Indication: ANXIETY
     Route: 048
  5. ZOPICLONE [Suspect]
     Active Substance: ZOPICLONE
     Indication: SLEEP DISORDER
     Dosage: NP
     Route: 048

REACTIONS (5)
  - Vomiting [Recovered/Resolved]
  - Overdose [Unknown]
  - Accidental poisoning [Unknown]
  - Miosis [Recovered/Resolved]
  - Somnolence [Recovered/Resolved]

NARRATIVE: CASE EVENT DATE: 20180114
